FAERS Safety Report 5803154-5 (Version None)
Quarter: 2008Q3

REPORT INFORMATION
  Report Type: 
  Country: None (occurrence: None)
  Receive Date: 20080708
  Receipt Date: 20080625
  Transmission Date: 20090109
  Serious: Yes (Death)
  Sender: FDA-Public Use
  Company Number: CA-ELI_LILLY_AND_COMPANY-CA200806005987

PATIENT
  Sex: Male

DRUGS (2)
  1. PROZAC [Suspect]
  2. OXYCONTIN [Interacting]

REACTIONS (1)
  - DRUG INTERACTION [None]
